FAERS Safety Report 5972422-9 (Version None)
Quarter: 2008Q4

REPORT INFORMATION
  Report Type: 
  Country: None (occurrence: None)
  Receive Date: 20081201
  Receipt Date: 20081125
  Transmission Date: 20090506
  Serious: Yes (Other)
  Sender: FDA-Public Use
  Company Number: B0547715A

PATIENT
  Age: 25 Year
  Sex: Female

DRUGS (2)
  1. NICORETTE [Suspect]
     Route: 045
     Dates: start: 20070101
  2. MIRTAZAPINE [Concomitant]

REACTIONS (2)
  - DEPENDENCE [None]
  - INCORRECT DRUG ADMINISTRATION DURATION [None]
